FAERS Safety Report 5304184-2 (Version None)
Quarter: 2007Q2

REPORT INFORMATION
  Report Type: 
  Country: None (occurrence: None)
  Receive Date: 20070423
  Receipt Date: 20070412
  Transmission Date: 20071010
  Serious: Yes (Other)
  Sender: FDA-Public Use
  Company Number: PHEH2007US05275

PATIENT
  Sex: Male

DRUGS (1)
  1. ENABLEX [Suspect]

REACTIONS (3)
  - DRY MOUTH [None]
  - EJACULATION DISORDER [None]
  - NAUSEA [None]
